FAERS Safety Report 8270883 (Version 3)
Quarter: 2012Q4

REPORT INFORMATION
  Report Type: Report from Study
  Country: JP (occurrence: JP)
  Receive Date: 20111201
  Receipt Date: 20120928
  Transmission Date: 20130627
  Serious: Yes (Other)
  Sender: FDA-Public Use
  Company Number: PHHY2011JP101033

PATIENT
  Age: 46 Year
  Sex: Female

DRUGS (5)
  1. AMN107 [Suspect]
     Indication: CHRONIC MYELOID LEUKAEMIA
     Dosage: 800 mg, daily
     Route: 048
     Dates: start: 20100702, end: 20100722
  2. TAKEPRON [Concomitant]
     Indication: PROPHYLAXIS
     Dosage: 15 mg, daily
     Route: 048
     Dates: start: 20100707, end: 20100722
  3. PREDONINE [Concomitant]
     Indication: CHRONIC MYELOID LEUKAEMIA
     Dosage: 60 mg daily
     Route: 048
     Dates: start: 20100712, end: 20100716
  4. ONCOVIN [Concomitant]
     Indication: CHRONIC MYELOID LEUKAEMIA
     Dosage: 2 mg, daily
     Route: 042
     Dates: start: 20100702
  5. FLOMOX [Concomitant]
     Dosage: 300 mg, daily
     Route: 048
     Dates: start: 20100705, end: 20100712

REACTIONS (4)
  - Platelet count decreased [Not Recovered/Not Resolved]
  - Chronic myeloid leukaemia transformation [Unknown]
  - Blast crisis in myelogenous leukaemia [Unknown]
  - Drug ineffective [Unknown]
